FAERS Safety Report 6506835-3 (Version None)
Quarter: 2009Q4

REPORT INFORMATION
  Report Type: 
  Country: None (occurrence: None)
  Receive Date: 20091216
  Receipt Date: 20091202
  Transmission Date: 20100525
  Serious: Yes (Death)
  Sender: FDA-Public Use
  Company Number: 233698J09USA

PATIENT
  Age: 47 Year
  Sex: Male

DRUGS (1)
  1. REBIF [Suspect]
     Indication: MULTIPLE SCLEROSIS
     Dates: start: 20040428, end: 20061101

REACTIONS (3)
  - IMMUNOSUPPRESSION [None]
  - LARYNGEAL CANCER STAGE IV [None]
  - WRONG TECHNIQUE IN DRUG USAGE PROCESS [None]
